FAERS Safety Report 4307397-1 (Version None)
Quarter: 2004Q1

REPORT INFORMATION
  Report Type: 
  Country: None (occurrence: None)
  Receive Date: 20040226
  Receipt Date: 20040217
  Transmission Date: 20041129
  Serious: Yes (Hospitalization)
  Sender: FDA-Public Use
  Company Number: 2004199880GB

PATIENT
  Age: 45 Year
  Sex: Female
  Weight: 87.9 kg

DRUGS (3)
  1. DOXORUBICIN HCL [Suspect]
     Indication: BREAST CANCER STAGE III
     Dosage: 120 MG, CYCLIC, 3 TIMES WEEKLY, IV
     Route: 042
     Dates: start: 20030915
  2. ZOMETA [Suspect]
     Indication: METASTASES TO BONE
     Dosage: 4 MG, CYCLIC, 3 TIMES WEEKLY, IV
     Route: 042
     Dates: start: 20030915
  3. CYCLOPHOSPHAMIDE [Suspect]
     Indication: BREAST CANCER STAGE III
     Dosage: 1200 MG, CYCLIC, 3 TIMES WEEKLY, IV
     Route: 042
     Dates: start: 20030915

REACTIONS (8)
  - ABDOMINAL PAIN UPPER [None]
  - BODY TEMPERATURE INCREASED [None]
  - CONDITION AGGRAVATED [None]
  - CONSTIPATION [None]
  - DEHYDRATION [None]
  - HAEMATEMESIS [None]
  - NAUSEA [None]
  - VOMITING [None]
